FAERS Safety Report 13607583 (Version 1)
Quarter: 2017Q2

REPORT INFORMATION
  Report Type: Spontaneous
  Country: US (occurrence: US)
  Receive Date: 20161116
  Receipt Date: 20161116
  Transmission Date: 20170830
  Serious: No
  Sender: FDA-Public Use
  Company Number: US-KEDRION-2016-260

PATIENT
  Age: 26 Year
  Sex: Female

DRUGS (1)
  1. RHOGAM [Suspect]
     Active Substance: HUMAN RHO(D) IMMUNE GLOBULIN
     Indication: PROPHYLAXIS AGAINST RH ISOIMMUNISATION
     Dates: start: 20160520

REACTIONS (1)
  - Hypersensitivity [Recovered/Resolved]

NARRATIVE: CASE EVENT DATE: 20160520
